FAERS Safety Report 9792224 (Version 2)
Quarter: 2014Q3

REPORT INFORMATION
  Report Type: Spontaneous
  Country: US (occurrence: None)
  Receive Date: 20131230
  Receipt Date: 20140910
  Transmission Date: 20150326
  Serious: Yes (Other)
  Sender: FDA-Public Use
  Company Number: COL_14877_2013

PATIENT
  Sex: Female

DRUGS (1)
  1. COLGATE TOTAL ADVANCE WHITENING [Suspect]
     Active Substance: SODIUM FLUORIDE\TRICLOSAN
     Indication: PRODUCT USED FOR UNKNOWN INDICATION
     Dosage: COVERS HEAD OF TOOTHBRUSH?
     Route: 048
     Dates: start: 2011

REACTIONS (4)
  - Allergic granulomatous angiitis [None]
  - Muscle atrophy [None]
  - Hypoaesthesia [None]
  - Asthenia [None]
